FAERS Safety Report 15242260 (Version 1)
Quarter: 2018Q4

REPORT INFORMATION
  Report Type: Report from Study
  Country: FR (occurrence: FR)
  Receive Date: 20180806
  Receipt Date: 20180806
  Transmission Date: 20190204
  Serious: Yes (Hospitalization, Other)
  Sender: FDA-Public Use
  Company Number: FR-ACCORD-070380

PATIENT
  Sex: Male

DRUGS (5)
  1. MERCAPTOPURINE/MERCAPTOPURINE ANHYDROUS [Suspect]
     Active Substance: MERCAPTOPURINE
     Indication: ACUTE LYMPHOCYTIC LEUKAEMIA
     Dosage: 36 MG, UNK
     Route: 048
     Dates: start: 20170929
  2. VINCRISTINE [Suspect]
     Active Substance: VINCRISTINE
     Indication: ACUTE LYMPHOCYTIC LEUKAEMIA
     Dosage: 1.1 MG, UNK
     Route: 042
     Dates: start: 20170929, end: 20171201
  3. PEGASPARGASE [Suspect]
     Active Substance: PEGASPARGASE
     Indication: ACUTE LYMPHOCYTIC LEUKAEMIA
     Dosage: 1830 IU, UNK
     Route: 042
     Dates: start: 20171006, end: 20171201
  4. METHOTREXATE. [Suspect]
     Active Substance: METHOTREXATE
     Indication: ACUTE LYMPHOCYTIC LEUKAEMIA
     Route: 037
     Dates: start: 20170930, end: 20171125
  5. DEXAMETHASONE. [Suspect]
     Active Substance: DEXAMETHASONE
     Indication: ACUTE LYMPHOCYTIC LEUKAEMIA
     Dosage: 4.2 MG, UNK
     Route: 048
     Dates: start: 20170929, end: 20171128

REACTIONS (2)
  - Febrile bone marrow aplasia [Unknown]
  - Off label use [Unknown]

NARRATIVE: CASE EVENT DATE: 20171201
